FAERS Safety Report 10812558 (Version 2)
Quarter: 2015Q1

REPORT INFORMATION
  Report Type: Spontaneous
  Country: AR (occurrence: AR)
  Receive Date: 20150218
  Receipt Date: 20150225
  Transmission Date: 20150721
  Serious: Yes (Death, Hospitalization)
  Sender: FDA-Public Use
  Company Number: AR-ROCHE-1537596

PATIENT
  Age: 11 Year
  Sex: Female
  Weight: 28.5 kg

DRUGS (8)
  1. ACTEMRA [Suspect]
     Active Substance: TOCILIZUMAB
     Dosage: 360 MG
     Route: 042
     Dates: start: 20141106
  2. ACTEMRA [Suspect]
     Active Substance: TOCILIZUMAB
     Dosage: 360 MG
     Route: 042
     Dates: start: 20141215
  3. ACTEMRA [Suspect]
     Active Substance: TOCILIZUMAB
     Dosage: 360 MG
     Route: 042
     Dates: start: 20150123
  4. PREDNISONE. [Concomitant]
     Active Substance: PREDNISONE
     Route: 048
  5. ACTEMRA [Suspect]
     Active Substance: TOCILIZUMAB
     Indication: JUVENILE IDIOPATHIC ARTHRITIS
     Dosage: 720 MG TOTAL MONTHLY DOSE
     Route: 042
     Dates: start: 20131111
  6. ACTEMRA [Suspect]
     Active Substance: TOCILIZUMAB
     Dosage: 360 MG
     Route: 042
     Dates: start: 20150108
  7. METHOTREXATE [Concomitant]
     Active Substance: METHOTREXATE
     Route: 048
  8. NAPROXEN. [Concomitant]
     Active Substance: NAPROXEN
     Route: 048

REACTIONS (4)
  - Herpes zoster [Unknown]
  - Septic shock [Fatal]
  - Sepsis [Fatal]
  - Seizure [Fatal]

NARRATIVE: CASE EVENT DATE: 20140707
